FAERS Safety Report 13068663 (Version 4)
Quarter: 2017Q2

REPORT INFORMATION
  Report Type: Spontaneous
  Country: GB (occurrence: GB)
  Receive Date: 20161228
  Receipt Date: 20170509
  Transmission Date: 20170830
  Serious: Yes (Other)
  Sender: FDA-Public Use
  Company Number: GB-PFIZER INC-2016597477

PATIENT
  Age: 40 Year
  Sex: Female

DRUGS (4)
  1. HUMIRA [Suspect]
     Active Substance: ADALIMUMAB
     Indication: PREGNANCY
     Dosage: UNK
  2. PROGESTERONE. [Suspect]
     Active Substance: PROGESTERONE
     Indication: PREGNANCY
     Dosage: UNK
  3. ASPIRIN /00002701/ [Interacting]
     Active Substance: ASPIRIN
     Indication: PREGNANCY
     Dosage: UNK
     Route: 048
  4. FRAGMIN [Suspect]
     Active Substance: DALTEPARIN SODIUM
     Indication: PREGNANCY
     Dosage: UNK

REACTIONS (7)
  - Abortion spontaneous [Unknown]
  - Surgical failure [Unknown]
  - Fallopian tube disorder [Unknown]
  - Haemorrhage in pregnancy [Recovered/Resolved]
  - Labelled drug-drug interaction medication error [Unknown]
  - Product use in unapproved indication [Unknown]
  - Vomiting in pregnancy [Unknown]

NARRATIVE: CASE EVENT DATE: 2016
